FAERS Safety Report 11528342 (Version 1)
Quarter: 2015Q3

REPORT INFORMATION
  Report Type: Spontaneous
  Country: US (occurrence: None)
  Receive Date: 20150917
  Receipt Date: 20150917
  Transmission Date: 20151125
  Serious: Yes (Other)
  Sender: FDA-Public Use
  Company Number: 1224850-2015-00040

PATIENT
  Sex: Male

DRUGS (3)
  1. PHOSLO [Suspect]
     Active Substance: CALCIUM ACETATE
  2. PERITONEAL DIALYSATE [Concomitant]
  3. LIPITOR [Concomitant]
     Active Substance: ATORVASTATIN CALCIUM

REACTIONS (1)
  - Hypercalcaemia [None]
